FAERS Safety Report 9667633 (Version 2)
Quarter: 2013Q4

REPORT INFORMATION
  Report Type: Spontaneous
  Country: FR (occurrence: FR)
  Receive Date: 20131104
  Receipt Date: 20131111
  Transmission Date: 20140711
  Serious: Yes (Hospitalization, Other)
  Sender: FDA-Public Use
  Company Number: FR-PFIZER INC-2013309813

PATIENT
  Age: 24 Day
  Sex: Female

DRUGS (3)
  1. DILANTIN [Suspect]
     Indication: CONVULSION
     Dosage: 55 MG, DURING 20 MINUTES
     Route: 040
     Dates: start: 20130911, end: 20130911
  2. KANEURON [Concomitant]
     Indication: ENCEPHALOPATHY
     Dosage: UNK
  3. RIVOTRIL [Concomitant]
     Indication: ENCEPHALOPATHY
     Dosage: UNK

REACTIONS (2)
  - Infusion site extravasation [Recovered/Resolved with Sequelae]
  - Skin necrosis [Recovered/Resolved with Sequelae]
